FAERS Safety Report 21964523 (Version 1)
Quarter: 2023Q1

REPORT INFORMATION
  Report Type: Spontaneous
  Country: US (occurrence: US)
  Receive Date: 20230207
  Receipt Date: 20230207
  Transmission Date: 20230417
  Serious: No
  Sender: FDA-Public Use
  Company Number: US-NEURELIS, INC.-2022NEU000139

PATIENT
  Sex: Male

DRUGS (1)
  1. VALTOCO [Suspect]
     Active Substance: DIAZEPAM
     Indication: Seizure cluster
     Dosage: UNK
     Route: 045

REACTIONS (2)
  - Mouth swelling [Recovered/Resolved]
  - Hypersensitivity [Recovered/Resolved]
